FAERS Safety Report 10488519 (Version 1)
Quarter: 2014Q4

REPORT INFORMATION
  Report Type: Spontaneous
  Country: US (occurrence: None)
  Receive Date: 20141001
  Receipt Date: 20141001
  Transmission Date: 20150528
  Serious: No
  Sender: FDA-Public Use
  Company Number: None

PATIENT
  Age: 49 Year
  Sex: Female
  Weight: 71.67 kg

DRUGS (1)
  1. ATORVASTATIN [Suspect]
     Active Substance: ATORVASTATIN
     Indication: BLOOD CHOLESTEROL INCREASED
     Route: 048
     Dates: start: 20140122, end: 20140209

REACTIONS (5)
  - Throat tightness [None]
  - Dyspnoea [None]
  - Presyncope [None]
  - Cough [None]
  - Pharyngeal oedema [None]

NARRATIVE: CASE EVENT DATE: 20140209
